FAERS Safety Report 23762143 (Version 6)
Quarter: 2024Q3

REPORT INFORMATION
  Report Type: Report from Study
  Country: US (occurrence: US)
  Receive Date: 20240419
  Receipt Date: 20240821
  Transmission Date: 20241017
  Serious: Yes (Other)
  Sender: NOVARTIS
  Company Number: US-002147023-NVSC2024US080340

PATIENT
  Sex: Male

DRUGS (1)
  1. KESIMPTA [Suspect]
     Active Substance: OFATUMUMAB
     Indication: Product used for unknown indication
     Dosage: 20 MG, QMO
     Route: 065

REACTIONS (12)
  - Multiple sclerosis [Unknown]
  - Paralysis [Unknown]
  - Illness [Unknown]
  - Feeling abnormal [Unknown]
  - Anger [Unknown]
  - Frustration tolerance decreased [Unknown]
  - Grief reaction [Unknown]
  - Depressed mood [Unknown]
  - Abdominal pain upper [Unknown]
  - Pain [Unknown]
  - Asthenia [Unknown]
  - Product use issue [Unknown]
